FAERS Safety Report 8197460 (Version 2)
Quarter: 2012Q4

REPORT INFORMATION
  Report Type: 
  Country: US (occurrence: US)
  Receive Date: 20111024
  Receipt Date: 20121025
  Transmission Date: 20130627
  Serious: Yes (Other)
  Sender: FDA-Public Use
  Company Number: US-US-EMD SERONO, INC.-7089644

PATIENT
  Sex: Female

DRUGS (3)
  1. REBIF [Suspect]
     Indication: PRODUCT USED FOR UNKNOWN INDICATION
     Dates: start: 20041018
  2. REBIF [Suspect]
  3. REBIF [Suspect]
     Route: 058

REACTIONS (3)
  - Renal failure chronic [Recovering/Resolving]
  - Micturition urgency [Unknown]
  - Urinary incontinence [Unknown]
